FAERS Safety Report 20364046 (Version 1)
Quarter: 2022Q1

REPORT INFORMATION
  Report Type: Spontaneous
  Country: US (occurrence: US)
  Receive Date: 20220121
  Receipt Date: 20220121
  Transmission Date: 20220423
  Serious: No
  Sender: FDA-Public Use
  Company Number: US-PFIZER INC-2019020209

PATIENT
  Age: 69 Year
  Sex: Female

DRUGS (4)
  1. LYRICA [Suspect]
     Active Substance: PREGABALIN
     Indication: Psoriatic arthropathy
     Dosage: 225 MG, 2X/DAY
     Route: 048
     Dates: start: 20190103
  2. LYRICA [Suspect]
     Active Substance: PREGABALIN
     Indication: Osteoarthritis
     Dosage: 225 MG, 2X/DAY
     Route: 048
     Dates: start: 20190924
  3. LYRICA [Suspect]
     Active Substance: PREGABALIN
     Indication: Arthropathy
  4. LYRICA [Suspect]
     Active Substance: PREGABALIN
     Indication: Hip fracture

REACTIONS (3)
  - Off label use [Unknown]
  - Product use in unapproved indication [Unknown]
  - Arthralgia [Unknown]

NARRATIVE: CASE EVENT DATE: 20190103
